FAERS Safety Report 6842627-3 (Version None)
Quarter: 2010Q3

REPORT INFORMATION
  Report Type: 
  Country: None (occurrence: None)
  Receive Date: 20100714
  Receipt Date: 20070802
  Transmission Date: 20110219
  Serious: No
  Sender: FDA-Public Use
  Company Number: US-PFIZER INC-2007065842

PATIENT
  Sex: Female
  Weight: 70.5 kg

DRUGS (6)
  1. CHANTIX [Suspect]
     Indication: SMOKING CESSATION THERAPY
     Dates: start: 20070301
  2. ZYRTEC [Suspect]
  3. ZYRTEC-D 12 HOUR [Suspect]
  4. ATENOLOL [Concomitant]
  5. COZAAR [Concomitant]
  6. NEXIUM [Concomitant]

REACTIONS (7)
  - FATIGUE [None]
  - HYPERTHYROIDISM [None]
  - MALAISE [None]
  - NAUSEA [None]
  - OROPHARYNGEAL PAIN [None]
  - TOBACCO USER [None]
  - WEIGHT INCREASED [None]
